FAERS Safety Report 23474900 (Version 1)
Quarter: 2024Q1

REPORT INFORMATION
  Report Type: Report from Study
  Country: CA (occurrence: CA)
  Receive Date: 20240204
  Receipt Date: 20240204
  Transmission Date: 20240410
  Serious: Yes (Death, Other)
  Sender: FDA-Public Use
  Company Number: CA-IPSEN Group, Research and Development-2023-19686

PATIENT
  Sex: Female

DRUGS (14)
  1. CABOMETYX [Suspect]
     Active Substance: CABOZANTINIB S-MALATE
     Indication: Renal cell carcinoma
     Dosage: 60 MG, QD
     Route: 048
     Dates: start: 20210831, end: 202301
  2. PROCHLORAZINE [Concomitant]
     Dosage: UNK
  3. BETADERM [Concomitant]
     Active Substance: BETAMETHASONE VALERATE
     Dosage: UNK
  4. RANITIDINE [Concomitant]
     Active Substance: RANITIDINE
     Dosage: UNK
  5. CLONAZEPAM [Concomitant]
     Active Substance: CLONAZEPAM
     Dosage: UNK
  6. LOMOTIL [Concomitant]
     Active Substance: ATROPINE SULFATE\DIPHENOXYLATE HYDROCHLORIDE
     Dosage: UNK
  7. CYCLOBENZAPRINE [Concomitant]
     Active Substance: CYCLOBENZAPRINE
     Dosage: UNK
  8. ACETAMINOPHEN\CAFFEINE\CODEINE [Concomitant]
     Active Substance: ACETAMINOPHEN\CAFFEINE\CODEINE
     Dosage: UNK
  9. CYMBALTA [Concomitant]
     Active Substance: DULOXETINE HYDROCHLORIDE
     Dosage: UNK
  10. NORFLOXACIN [Concomitant]
     Active Substance: NORFLOXACIN
     Dosage: UNK
  11. MOXIFLOXACIN [Concomitant]
     Active Substance: MOXIFLOXACIN
     Dosage: UNK
  12. ILEVRO [Concomitant]
     Active Substance: NEPAFENAC
     Dosage: UNK
  13. QUININE [Concomitant]
     Active Substance: QUININE
     Dosage: UNK
  14. DUREZOL [Concomitant]
     Active Substance: DIFLUPREDNATE
     Dosage: UNK

REACTIONS (1)
  - Renal cell carcinoma [Fatal]
